FAERS Safety Report 8301562-4 (Version None)
Quarter: 2012Q2

REPORT INFORMATION
  Report Type: 
  Country: None (occurrence: None)
  Receive Date: 20120420
  Receipt Date: 20120406
  Transmission Date: 20120825
  Serious: Yes (Other)
  Sender: FDA-Public Use
  Company Number: US-ROCHE-1057772

PATIENT
  Sex: Male

DRUGS (3)
  1. COUMADIN [Concomitant]
     Indication: DEEP VEIN THROMBOSIS
  2. COUMADIN [Concomitant]
     Indication: PULMONARY EMBOLISM
     Route: 065
  3. XOLAIR [Suspect]
     Indication: ASTHMA
     Route: 065
     Dates: start: 20090201

REACTIONS (1)
  - COLONIC POLYP [None]
